FAERS Safety Report 5044382-9 (Version None)
Quarter: 2006Q2

REPORT INFORMATION
  Report Type: 
  Country: None (occurrence: None)
  Receive Date: 20060629
  Receipt Date: 20060622
  Transmission Date: 20061013
  Serious: Yes (Life-Threatening, Hospitalization)
  Sender: FDA-Public Use
  Company Number: 2006036174

PATIENT
  Age: 64 Year
  Sex: Female
  Weight: 120 kg

DRUGS (15)
  1. LYRICA [Suspect]
     Indication: PAIN
     Dosage: 300 MG (150 MG, 2 IN 1 D) ORAL
     Route: 048
     Dates: start: 20060307, end: 20060313
  2. M-LONG (MORPHINE SULFATE) [Concomitant]
  3. IBUPROFEN [Concomitant]
  4. AMITRIPTYLINE HCL [Concomitant]
  5. INSULIN [Concomitant]
  6. ISOSORBIDE DINITRATE [Concomitant]
  7. MOLSIDOMINE [Concomitant]
  8. ACETYLSALICYLIC ACID SRT [Concomitant]
  9. RAMIPRIL [Concomitant]
  10. HYDROCHLOROTHIAZIDE [Concomitant]
  11. METHOHEXITAL [Concomitant]
  12. DECORTIN (PREDNISONE) [Concomitant]
  13. SULFASALAZIN (SULFASALAZINE) [Concomitant]
  14. ARAVA [Concomitant]
  15. OMEPRAZOLE [Concomitant]

REACTIONS (5)
  - DRUG WITHDRAWAL SYNDROME [None]
  - HAEMODIALYSIS [None]
  - MYOCLONUS [None]
  - RENAL FAILURE ACUTE [None]
  - RHABDOMYOLYSIS [None]
